FAERS Safety Report 25017810 (Version 1)
Quarter: 2025Q1

REPORT INFORMATION
  Report Type: Spontaneous
  Country: US (occurrence: US)
  Receive Date: 20250227
  Receipt Date: 20250227
  Transmission Date: 20250409
  Serious: No
  Sender: BRISTOL-MYERS SQUIBB COMPANY
  Company Number: US-BRISTOL-MYERS SQUIBB COMPANY-2025-029235

PATIENT
  Age: 59 Year
  Sex: Male

DRUGS (2)
  1. AUGTYRO [Suspect]
     Active Substance: REPOTRECTINIB
     Indication: Product used for unknown indication
     Dosage: DOSE : 4 CAPSULES (160MG) TWICE A DAY;     FREQ : 4 CAPSULES (160MG) TWICE A DAY
  2. AUGTYRO [Suspect]
     Active Substance: REPOTRECTINIB

REACTIONS (1)
  - Toxicity to various agents [Unknown]
